FAERS Safety Report 14572423 (Version 1)
Quarter: 2018Q1

REPORT INFORMATION
  Report Type: Spontaneous
  Country: US (occurrence: US)
  Receive Date: 20180221
  Receipt Date: 20180221
  Transmission Date: 20180509
  Serious: Yes (Other)
  Sender: FDA-Public Use
  Company Number: None

PATIENT
  Age: 61 Year
  Sex: Male

DRUGS (21)
  1. ELIQUIS [Concomitant]
     Active Substance: APIXABAN
  2. FLORASTOR [Concomitant]
     Active Substance: SACCHAROMYCES CEREVISIAE
  3. PROBIOTIC [Concomitant]
     Active Substance: PROBIOTICS NOS
  4. SIMVASTATIN. [Concomitant]
     Active Substance: SIMVASTATIN
  5. LYRICA [Concomitant]
     Active Substance: PREGABALIN
  6. METFORMIN [Concomitant]
     Active Substance: METFORMIN HYDROCHLORIDE
  7. BUDESONIDE. [Concomitant]
     Active Substance: BUDESONIDE
  8. DOXYCYCLINE. [Concomitant]
     Active Substance: DOXYCYCLINE
  9. PREDNISONE. [Concomitant]
     Active Substance: PREDNISONE
  10. TRESIBA INJ [Concomitant]
  11. TRIAMCINOLON [Concomitant]
  12. CLINDAMYCIN. [Concomitant]
     Active Substance: CLINDAMYCIN
  13. MUPIROCIN. [Concomitant]
     Active Substance: MUPIROCIN
  14. ONDANSETRON [Concomitant]
     Active Substance: ONDANSETRON
  15. OXYCODONE [Concomitant]
     Active Substance: OXYCODONE
  16. LEVOTHYROXINE. [Concomitant]
     Active Substance: LEVOTHYROXINE
  17. METOPROLOL. [Concomitant]
     Active Substance: METOPROLOL
  18. NOVOLOG [Concomitant]
     Active Substance: INSULIN ASPART
  19. XOLAIR [Suspect]
     Active Substance: OMALIZUMAB
     Indication: ASTHMA
     Dosage: ?          OTHER FREQUENCY:EVERY 4 WEEKS;?
     Route: 058
     Dates: start: 20171214
  20. ALBUTEROL. [Concomitant]
     Active Substance: ALBUTEROL
  21. AMOXICILLIN. [Concomitant]
     Active Substance: AMOXICILLIN

REACTIONS (2)
  - Therapy cessation [None]
  - Pulmonary embolism [None]

NARRATIVE: CASE EVENT DATE: 20180126
